FAERS Safety Report 18318652 (Version 1)
Quarter: 2020Q3

REPORT INFORMATION
  Report Type: Spontaneous
  Country: US (occurrence: US)
  Receive Date: 20200927
  Receipt Date: 20200927
  Transmission Date: 20201103
  Serious: Yes (Other)
  Sender: FDA-Public Use
  Company Number: None

PATIENT
  Age: 28 Year
  Sex: Female
  Weight: 85.5 kg

DRUGS (3)
  1. MONTELUKAST [Suspect]
     Active Substance: MONTELUKAST SODIUM
     Indication: BRONCHIAL HYPERREACTIVITY
     Dosage: ?          QUANTITY:90 TABLET(S);?
     Route: 048
     Dates: start: 20190820, end: 20200607
  2. ZYRTEC [Concomitant]
     Active Substance: CETIRIZINE HYDROCHLORIDE
  3. XYZAL [Concomitant]
     Active Substance: LEVOCETIRIZINE DIHYDROCHLORIDE

REACTIONS (3)
  - Anxiety [None]
  - Panic attack [None]
  - Paranoia [None]

NARRATIVE: CASE EVENT DATE: 20200315
